FAERS Safety Report 8742629 (Version 1)
Quarter: 2012Q4

REPORT INFORMATION
  Report Type: 
  Country: US (occurrence: US)
  Receive Date: 20120830
  Receipt Date: 20120830
  Transmission Date: 20130627
  Serious: Yes (Hospitalization)
  Sender: FDA-Public Use
  Company Number: US-AMGEN-USASP2012053077

PATIENT
  Age: 76 Year
  Sex: Female

DRUGS (1)
  1. ENBREL [Suspect]
     Indication: MUSCULOSKELETAL PAIN
     Dosage: 50 mul/ml, qwk
     Route: 058
     Dates: start: 20010101, end: 20120701

REACTIONS (1)
  - Blood glucose decreased [Recovered/Resolved]
